FAERS Safety Report 7532950-1 (Version None)
Quarter: 2011Q2

REPORT INFORMATION
  Report Type: 
  Country: None (occurrence: None)
  Receive Date: 20110608
  Receipt Date: 20110525
  Transmission Date: 20111010
  Serious: Yes (Death)
  Sender: FDA-Public Use
  Company Number: US-JNJFOC-20110305438

PATIENT
  Sex: Male

DRUGS (5)
  1. SIMVASTATIN [Concomitant]
     Indication: HYPERLIPIDAEMIA
  2. LEVOTHYROXINE SODIUM [Concomitant]
     Indication: HYPOTHYROIDISM
     Dosage: 50 MCG
  3. METHOTREXATE [Concomitant]
     Indication: PITYRIASIS RUBRA PILARIS
  4. FOLIC ACID [Concomitant]
  5. REMICADE [Suspect]
     Indication: PITYRIASIS RUBRA PILARIS
     Route: 042
     Dates: start: 20060531, end: 20100902

REACTIONS (2)
  - GASTROOESOPHAGEAL CANCER [None]
  - COMPLETED SUICIDE [None]
